FAERS Safety Report 21071502 (Version 1)
Quarter: 2022Q3

REPORT INFORMATION
  Report Type: Spontaneous
  Country: FR (occurrence: FR)
  Receive Date: 20220712
  Receipt Date: 20220712
  Transmission Date: 20221027
  Serious: Yes (Death)
  Sender: FDA-Public Use
  Company Number: None

PATIENT
  Age: 77 Year
  Sex: Male
  Weight: 75 kg

DRUGS (8)
  1. SIMVASTATIN [Suspect]
     Active Substance: SIMVASTATIN
     Indication: Dyslipidaemia
     Dosage: 10 MG, QD
     Route: 048
     Dates: start: 202106, end: 20220225
  2. PANTOPRAZOLE [Suspect]
     Active Substance: PANTOPRAZOLE
     Indication: Gastrooesophageal reflux disease
     Dosage: 80 MG, QD
     Route: 048
     Dates: end: 20220225
  3. ENALAPRIL MALEATE [Suspect]
     Active Substance: ENALAPRIL MALEATE
     Indication: Product used for unknown indication
     Dosage: 2.5 MG, QD
     Route: 048
     Dates: end: 20220309
  4. CLOPIDOGREL [Suspect]
     Active Substance: CLOPIDOGREL BISULFATE
     Indication: Product used for unknown indication
     Dosage: 75 MG, QD (BASE)
     Route: 048
     Dates: end: 20220411
  5. POLYETHYLENE GLYCOL 4000 [Suspect]
     Active Substance: POLYETHYLENE GLYCOL 4000
     Indication: Constipation
     Dosage: 1 DOSAGE FORM, PRN
     Route: 048
     Dates: end: 20220309
  6. URSODIOL [Suspect]
     Active Substance: URSODIOL
     Indication: Biliary tract disorder
     Dosage: 1 G, QD
     Route: 048
     Dates: start: 202105, end: 20220225
  7. DOXAZOSIN MESYLATE [Suspect]
     Active Substance: DOXAZOSIN MESYLATE
     Indication: Micturition disorder
     Dosage: 8 MG, QD
     Route: 048
     Dates: end: 20220225
  8. DILTIAZEM [Suspect]
     Active Substance: DILTIAZEM
     Indication: Hypertension
     Dosage: 200 MG, QD
     Route: 048
     Dates: end: 20220309

REACTIONS (1)
  - Biliary cirrhosis [Fatal]

NARRATIVE: CASE EVENT DATE: 20220101
